FAERS Safety Report 18407682 (Version 2)
Quarter: 2020Q4

REPORT INFORMATION
  Report Type: Report from Study
  Country: EG (occurrence: EG)
  Receive Date: 20201021
  Receipt Date: 20201127
  Transmission Date: 20210114
  Serious: Yes (Other)
  Sender: FDA-Public Use
  Company Number: EG-REGENERON PHARMACEUTICALS, INC.-2020-83012

PATIENT

DRUGS (6)
  1. NATRILIX                           /00340101/ [Concomitant]
     Active Substance: INDAPAMIDE
     Indication: HYPERTENSION
     Dosage: 1 DF, OM
  2. EYLEA [Suspect]
     Active Substance: AFLIBERCEPT
     Dosage: 1 DF, ONCE INTO LEFT EYE AND LATEST DOSE
     Route: 031
     Dates: start: 20200920, end: 20200920
  3. VITAMIN D                          /07503901/ [Concomitant]
     Active Substance: VITAMIN D NOS
     Indication: BONE DISORDER
     Dosage: UNK, IRR
     Dates: start: 2017
  4. CALCIUM [Concomitant]
     Active Substance: CALCIUM
     Indication: BONE DISORDER
     Dosage: 1 DF, QD
     Dates: start: 2017
  5. EYLEA [Suspect]
     Active Substance: AFLIBERCEPT
     Indication: MACULAR OEDEMA
     Dosage: TOTAL OF THREE INJECTIONS IN LEFT EYE; DOSE AND FREQUENCY UNKNOWN
     Route: 031
  6. TRIPLE OMEGA 3 6 9 [Concomitant]
     Indication: BONE DISORDER
     Dosage: 2 DF, QD
     Dates: start: 2017

REACTIONS (7)
  - Multiple use of single-use product [Not Recovered/Not Resolved]
  - Vision blurred [Not Recovered/Not Resolved]
  - Intra-ocular injection complication [Not Recovered/Not Resolved]
  - Drug ineffective [Unknown]
  - Headache [Not Recovered/Not Resolved]
  - Stress [Not Recovered/Not Resolved]
  - Visual impairment [Not Recovered/Not Resolved]

NARRATIVE: CASE EVENT DATE: 202009
